FAERS Safety Report 6507289-3 (Version None)
Quarter: 2009Q4

REPORT INFORMATION
  Report Type: 
  Country: None (occurrence: None)
  Receive Date: 20091221
  Receipt Date: 20091208
  Transmission Date: 20100525
  Serious: Yes (Other)
  Sender: FDA-Public Use
  Company Number: US-ELI_LILLY_AND_COMPANY-US200911002508

PATIENT
  Sex: Female
  Weight: 79.8 kg

DRUGS (14)
  1. CHK-1 INHIBITOR I (LY2603618) [Suspect]
     Indication: RENAL CELL CARCINOMA
     Dosage: 200 MG/M2, UNK
     Route: 042
     Dates: start: 20091027, end: 20091103
  2. CHK-1 INHIBITOR I (LY2603618) [Suspect]
     Dates: start: 20091124
  3. GEMCITABINE HCL [Suspect]
     Indication: RENAL CELL CARCINOMA
     Dosage: 1000 MG/M2, UNK
     Route: 042
     Dates: start: 20091026, end: 20091109
  4. GEMCITABINE HCL [Suspect]
     Dates: start: 20091124
  5. CELEXA [Concomitant]
     Indication: DEPRESSION
     Dates: start: 20080329
  6. DIOVAN [Concomitant]
     Indication: HYPERTENSION
     Dates: start: 20091001
  7. KEPPRA [Concomitant]
     Indication: CONVULSION
     Dates: start: 20080329
  8. LAMICTAL [Concomitant]
     Indication: DEPRESSION
     Dates: start: 20080821
  9. ASPIRIN [Concomitant]
     Indication: PROPHYLAXIS
     Dates: start: 20081005
  10. COMPAZINE [Concomitant]
     Indication: NAUSEA
     Dates: start: 20091027
  11. CALCIUM [Concomitant]
     Indication: MEDICAL DIET
     Dates: start: 20080322
  12. EMEND [Concomitant]
     Indication: NAUSEA
     Dates: start: 20091104
  13. CODEINE [Concomitant]
     Indication: PAIN
     Dates: start: 20091001
  14. MULTI-VITAMIN [Concomitant]
     Indication: MEDICAL DIET
     Dates: start: 20091005

REACTIONS (1)
  - PHLEBITIS SUPERFICIAL [None]
